FAERS Safety Report 4986090-6 (Version None)
Quarter: 2006Q1

REPORT INFORMATION
  Report Type: 
  Country: None (occurrence: None)
  Receive Date: 20060309
  Receipt Date: 20050630
  Transmission Date: 20060701
  Serious: Yes (Other)
  Sender: FDA-Public Use
  Company Number: 409749

PATIENT
  Age: 15 Year
  Sex: Male
  Weight: 88.9 kg

DRUGS (1)
  1. ACCUTANE [Suspect]
     Dosage: 2 PER DAY  ORAL
     Route: 048
     Dates: start: 20050304, end: 20050628

REACTIONS (1)
  - CATARACT SUBCAPSULAR [None]
